FAERS Safety Report 7515988-X (Version None)
Quarter: 2011Q2

REPORT INFORMATION
  Report Type: 
  Country: None (occurrence: None)
  Receive Date: 20110601
  Receipt Date: 20110317
  Transmission Date: 20111010
  Serious: No
  Sender: FDA-Public Use
  Company Number: US-BAYER-2011-024257

PATIENT
  Sex: Female

DRUGS (1)
  1. YAZ [Suspect]
     Indication: POST COITAL CONTRACEPTION
     Route: 048

REACTIONS (1)
  - NO ADVERSE EVENT [None]
